FAERS Safety Report 9105292 (Version 2)
Quarter: 2013Q1

REPORT INFORMATION
  Report Type: Spontaneous
  Country: US (occurrence: US)
  Receive Date: 20130220
  Receipt Date: 20130329
  Transmission Date: 20140127
  Serious: Yes (Other)
  Sender: FDA-Public Use
  Company Number: US-AMGEN-USASP2013010000

PATIENT
  Age: 62 Year
  Sex: Male

DRUGS (4)
  1. ARANESP [Suspect]
     Indication: ANAEMIA
     Dosage: 500 MUG, UNK
     Dates: start: 201210
  2. ARANESP [Suspect]
  3. XGEVA [Concomitant]
     Indication: LUNG NEOPLASM MALIGNANT
  4. ALIMTA [Concomitant]
     Indication: LUNG NEOPLASM MALIGNANT

REACTIONS (3)
  - Aplasia pure red cell [Unknown]
  - Haemoglobin abnormal [Unknown]
  - Reticulocyte count abnormal [Unknown]
